FAERS Safety Report 19494003 (Version 4)
Quarter: 2025Q2

REPORT INFORMATION
  Report Type: Report from Study
  Country: CA (occurrence: CA)
  Receive Date: 20210705
  Receipt Date: 20250514
  Transmission Date: 20250717
  Serious: Yes (Other)
  Sender: TAKEDA
  Company Number: CA-TAKEDA-2020TUS030748

PATIENT
  Age: 81 Year
  Sex: Female

DRUGS (9)
  1. VEDOLIZUMAB [Suspect]
     Active Substance: VEDOLIZUMAB
     Indication: Colitis ulcerative
  2. VEDOLIZUMAB [Suspect]
     Active Substance: VEDOLIZUMAB
     Indication: Crohn^s disease
  3. VEDOLIZUMAB [Suspect]
     Active Substance: VEDOLIZUMAB
  4. VEDOLIZUMAB [Suspect]
     Active Substance: VEDOLIZUMAB
  5. VEDOLIZUMAB [Suspect]
     Active Substance: VEDOLIZUMAB
  6. VEDOLIZUMAB [Suspect]
     Active Substance: VEDOLIZUMAB
  7. VEDOLIZUMAB [Suspect]
     Active Substance: VEDOLIZUMAB
  8. VEDOLIZUMAB [Suspect]
     Active Substance: VEDOLIZUMAB
     Dosage: 300 MILLIGRAM, Q4WEEKS
     Dates: start: 20250506
  9. CHOLESTYRAMINE [Concomitant]
     Active Substance: CHOLESTYRAMINE
     Dosage: UNK, QD

REACTIONS (21)
  - Inflammatory bowel disease [Unknown]
  - Arthropod bite [Unknown]
  - Rash macular [Unknown]
  - Diarrhoea [Unknown]
  - Anxiety [Unknown]
  - Dysphonia [Not Recovered/Not Resolved]
  - Tongue injury [Unknown]
  - Throat tightness [Not Recovered/Not Resolved]
  - Sputum discoloured [Not Recovered/Not Resolved]
  - Head discomfort [Unknown]
  - Productive cough [Unknown]
  - Off label use [Unknown]
  - Ear infection [Recovered/Resolved]
  - Abdominal pain [Unknown]
  - Dizziness [Unknown]
  - Nasal congestion [Unknown]
  - Erythema [Not Recovered/Not Resolved]
  - Pruritus [Recovered/Resolved]
  - Oropharyngeal pain [Unknown]
  - Sinusitis [Recovering/Resolving]
  - Infected bite [Unknown]

NARRATIVE: CASE EVENT DATE: 20200713
